FAERS Safety Report 15805027 (Version 1)
Quarter: 2019Q1

REPORT INFORMATION
  Report Type: Spontaneous
  Country: GB (occurrence: GB)
  Receive Date: 20190110
  Receipt Date: 20190110
  Transmission Date: 20190417
  Serious: Yes (Hospitalization, Disabling, Other)
  Sender: FDA-Public Use
  Company Number: GB-TEVA-2019-GB-996811

PATIENT
  Age: 74 Year
  Sex: Female
  Weight: 42.63 kg

DRUGS (3)
  1. CIPROFLOXACIN. [Suspect]
     Active Substance: CIPROFLOXACIN
     Indication: PYELONEPHRITIS
     Dosage: 20 ML DAILY;
     Route: 048
     Dates: start: 20180216, end: 20180226
  2. GENTAMICIN. [Suspect]
     Active Substance: GENTAMICIN
     Indication: PYELONEPHRITIS
     Dosage: 2 DOSAGE FORMS DAILY;
     Route: 051
     Dates: start: 20180212
  3. TRIMETHOPRIM. [Concomitant]
     Active Substance: TRIMETHOPRIM
     Indication: URINARY TRACT INFECTION
     Route: 065

REACTIONS (6)
  - Paraesthesia [Unknown]
  - Vestibular disorder [Unknown]
  - Burning sensation [Unknown]
  - Neuropathy peripheral [Unknown]
  - Tremor [Unknown]
  - Dizziness postural [Not Recovered/Not Resolved]

NARRATIVE: CASE EVENT DATE: 20180221
